FAERS Safety Report 17110811 (Version 1)
Quarter: 2019Q4

REPORT INFORMATION
  Report Type: Spontaneous
  Country: US (occurrence: US)
  Receive Date: 20191109
  Receipt Date: 20191109
  Transmission Date: 20200122
  Serious: No
  Sender: FDA-Public Use
  Company Number: None

PATIENT
  Age: 57 Year
  Sex: Female

DRUGS (1)
  1. ODOMZO [Suspect]
     Active Substance: SONIDEGIB
     Route: 048
     Dates: start: 20190815

REACTIONS (2)
  - Neuropathy peripheral [None]
  - Infected cyst [None]

NARRATIVE: CASE EVENT DATE: 20191109
